FAERS Safety Report 6212197-1 (Version None)
Quarter: 2009Q2

REPORT INFORMATION
  Report Type: 
  Country: None (occurrence: None)
  Receive Date: 20090602
  Receipt Date: 20090526
  Transmission Date: 20091009
  Serious: Yes (Hospitalization)
  Sender: FDA-Public Use
  Company Number: PHHO2009US06658

PATIENT
  Sex: Female
  Weight: 74 kg

DRUGS (2)
  1. LOTREL [Suspect]
     Indication: HYPERTENSION
     Dosage: UNK
     Route: 048
     Dates: start: 20040324
  2. LOTREL [Suspect]
     Dosage: UNSPECIFIED LEVEL
     Route: 048

REACTIONS (4)
  - CAROTID ARTERY STENOSIS [None]
  - DIARRHOEA [None]
  - NAUSEA [None]
  - VOMITING [None]
